FAERS Safety Report 20571037 (Version 1)
Quarter: 2022Q1

REPORT INFORMATION
  Report Type: Spontaneous
  Country: GR (occurrence: GR)
  Receive Date: 20220309
  Receipt Date: 20220309
  Transmission Date: 20220423
  Serious: Yes (Hospitalization, Other)
  Sender: FDA-Public Use
  Company Number: GR-009507513-2203GRC002630

PATIENT
  Age: 55 Year
  Sex: Male

DRUGS (2)
  1. KEYTRUDA [Suspect]
     Active Substance: PEMBROLIZUMAB
     Indication: Non-small cell lung cancer metastatic
     Dosage: UNK
     Dates: start: 202101
  2. CARBOPLATIN [Concomitant]
     Active Substance: CARBOPLATIN
     Indication: Non-small cell lung cancer metastatic
     Dosage: UNK
     Dates: start: 202101

REACTIONS (5)
  - Rheumatoid arthritis [Unknown]
  - Immune-mediated enterocolitis [Unknown]
  - Pneumonia [Unknown]
  - Phrenic nerve paralysis [Unknown]
  - Mass excision [Recovering/Resolving]

NARRATIVE: CASE EVENT DATE: 20210101
